FAERS Safety Report 4760900-X (Version None)
Quarter: 2005Q3

REPORT INFORMATION
  Report Type: 
  Country: None (occurrence: None)
  Receive Date: 20050902
  Receipt Date: 20050810
  Transmission Date: 20060218
  Serious: Yes (Hospitalization, Other)
  Sender: FDA-Public Use
  Company Number: US-ABBOTT-05P-163-0308152-00

PATIENT
  Sex: Female

DRUGS (8)
  1. HUMIRA [Suspect]
     Indication: RHEUMATOID ARTHRITIS
     Route: 058
  2. ETHAMBUTOL HCL [Suspect]
     Indication: TUBERCULOSIS
     Dates: start: 20040801, end: 20050501
  3. ETANERCEPT [Suspect]
     Indication: RHEUMATOID ARTHRITIS
  4. RIFAMPICIN [Concomitant]
     Indication: TUBERCULOSIS
     Dates: start: 20040801, end: 20050501
  5. PYRAZINAMIDE [Concomitant]
     Indication: TUBERCULOSIS
     Dates: start: 20040801, end: 20050501
  6. PREDNISONE [Concomitant]
     Indication: RHEUMATOID ARTHRITIS
     Route: 048
     Dates: start: 20050201
  7. METHOTREXATE [Concomitant]
     Indication: RHEUMATOID ARTHRITIS
     Dates: start: 20050201
  8. ETHAMBUTOL HYDROCHLORIDE [Concomitant]
     Indication: DRUG USE FOR UNKNOWN INDICATION

REACTIONS (6)
  - BLINDNESS [None]
  - DRUG TOXICITY [None]
  - OPTIC NEUROPATHY [None]
  - TUBERCULOSIS [None]
  - VISION BLURRED [None]
  - VISUAL FIELD DEFECT [None]
